FAERS Safety Report 4269442-1 (Version None)
Quarter: 2004Q1

REPORT INFORMATION
  Report Type: 
  Country: None (occurrence: None)
  Receive Date: 20040113
  Receipt Date: 20030825
  Transmission Date: 20041129
  Serious: Yes (Disabling)
  Sender: FDA-Public Use
  Company Number: US-ROCHE-345477

PATIENT
  Sex: Male

DRUGS (1)
  1. ACCUTANE [Suspect]
     Indication: DRUG USE FOR UNKNOWN INDICATION
     Route: 048
     Dates: end: 20010115

REACTIONS (5)
  - COLITIS ULCERATIVE [None]
  - CROHN'S DISEASE [None]
  - HEPATOCELLULAR DAMAGE [None]
  - ILEITIS [None]
  - INTESTINAL HAEMORRHAGE [None]
